FAERS Safety Report 4382492-X (Version None)
Quarter: 2004Q2

REPORT INFORMATION
  Report Type: 
  Country: None (occurrence: None)
  Receive Date: 20040607
  Receipt Date: 20040524
  Transmission Date: 20050107
  Serious: No
  Sender: FDA-Public Use
  Company Number: 2004-116421-NL

PATIENT
  Sex: Female

DRUGS (1)
  1. TICE BCG [Suspect]
     Indication: BLADDER CANCER
     Dosage: 0.33 DF WEEKLY
     Route: 043
     Dates: start: 19990913, end: 19991018

REACTIONS (2)
  - SKIN INFECTION [None]
  - VASCULITIC RASH [None]
